FAERS Safety Report 15608544 (Version 1)
Quarter: 2018Q4

REPORT INFORMATION
  Report Type: Spontaneous
  Country: JP (occurrence: JP)
  Receive Date: 20181112
  Receipt Date: 20181112
  Transmission Date: 20190205
  Serious: Yes (Other)
  Sender: FDA-Public Use
  Company Number: JP-SA-2018SA308354

PATIENT

DRUGS (3)
  1. LEVOFOLINATE CALCIUM [Suspect]
     Active Substance: LEVOLEUCOVORIN CALCIUM
     Dosage: UNK UNK, QD
     Route: 041
  2. CAMPTO [Suspect]
     Active Substance: IRINOTECAN
     Dosage: UNK UNK, QD
     Route: 041
  3. ELPLAT [Suspect]
     Active Substance: OXALIPLATIN
     Dosage: UNK UNK, QD
     Route: 041

REACTIONS (3)
  - Febrile neutropenia [Recovering/Resolving]
  - Tumour lysis syndrome [Recovering/Resolving]
  - Pneumonia [Recovering/Resolving]
